FAERS Safety Report 18324063 (Version 1)
Quarter: 2020Q3

REPORT INFORMATION
  Report Type: Spontaneous
  Country: JP (occurrence: JP)
  Receive Date: 20200929
  Receipt Date: 20200929
  Transmission Date: 20201103
  Serious: Yes (Other)
  Sender: FDA-Public Use
  Company Number: PHHY2013JP174375

PATIENT
  Age: 80 Year
  Sex: Female

DRUGS (4)
  1. ALLEGRA [Concomitant]
     Active Substance: FEXOFENADINE HYDROCHLORIDE
     Indication: PRODUCT USED FOR UNKNOWN INDICATION
     Dosage: 120 MG, QD
     Route: 048
  2. PREDONINE [Concomitant]
     Active Substance: PREDNISOLONE
     Indication: IMMUNE THROMBOCYTOPENIA
     Dosage: 15 MG, QD
     Route: 048
  3. THYRADIN [Concomitant]
     Active Substance: LEVOTHYROXINE
     Indication: HYPOTHYROIDISM
     Dosage: 75 UG, QD
     Route: 048
  4. ELTROMBOPAG [Suspect]
     Active Substance: ELTROMBOPAG
     Indication: IMMUNE THROMBOCYTOPENIA
     Dosage: 12.5 MG, QD
     Route: 048
     Dates: start: 20130930

REACTIONS (5)
  - Muscular weakness [Recovering/Resolving]
  - Cerebral infarction [Recovering/Resolving]
  - Paralysis [Recovering/Resolving]
  - Gait disturbance [Recovering/Resolving]
  - Movement disorder [Recovering/Resolving]

NARRATIVE: CASE EVENT DATE: 20131012
